FAERS Safety Report 19795950 (Version 2)
Quarter: 2021Q3

REPORT INFORMATION
  Report Type: Spontaneous
  Country: NL (occurrence: NL)
  Receive Date: 20210907
  Receipt Date: 20210909
  Transmission Date: 20211014
  Serious: Yes (Other)
  Sender: FDA-Public Use
  Company Number: NL-REGENERON PHARMACEUTICALS, INC.-2021-81346

PATIENT

DRUGS (8)
  1. PRALUENT [Suspect]
     Active Substance: ALIROCUMAB
     Indication: PRODUCT USED FOR UNKNOWN INDICATION
     Dosage: UNK
     Dates: end: 20210807
  2. DEPAKINE                           /00228502/ [Suspect]
     Active Substance: VALPROATE SODIUM
     Indication: EPILEPSY
     Dosage: 500 MG, BID
  3. DEPAKINE                           /00228502/ [Suspect]
     Active Substance: VALPROATE SODIUM
     Dosage: UNK
  4. TAMSULOSINE                        /01280301/ [Concomitant]
     Active Substance: TAMSULOSIN
     Dosage: UNK
  5. ASA [Concomitant]
     Active Substance: ASPIRIN
     Dosage: UNK
  6. DIPYRIDAMOL [Concomitant]
     Active Substance: DIPYRIDAMOLE
     Dosage: UNK
  7. EZETIMIBE. [Concomitant]
     Active Substance: EZETIMIBE
     Dosage: 500 MG
  8. PANTOPRAZOL +PHARMA [Concomitant]
     Dosage: UNK

REACTIONS (8)
  - Feeling cold [Unknown]
  - Cerebrovascular accident [Unknown]
  - Nausea [Unknown]
  - Erythema [Unknown]
  - Diarrhoea [Unknown]
  - Malaise [Unknown]
  - Therapeutic response decreased [Unknown]
  - Epilepsy [Unknown]

NARRATIVE: CASE EVENT DATE: 202008
